FAERS Safety Report 4931226-6 (Version None)
Quarter: 2006Q1

REPORT INFORMATION
  Report Type: 
  Country: None (occurrence: None)
  Receive Date: 20060227
  Receipt Date: 20060215
  Transmission Date: 20060701
  Serious: Yes (Other)
  Sender: FDA-Public Use
  Company Number: 2006022070

PATIENT
  Sex: 0

DRUGS (2)
  1. SERTRALINE [Suspect]
     Indication: MAJOR DEPRESSION
     Dosage: MEAN STUDY DOSAGE: 167.9+/-19.5 MG
  2. ZIPRASIDONE HCL [Suspect]
     Indication: MAJOR DEPRESSION
     Dosage: MEAN STUDY DOSAGE:  81.5+/-33.4 MG

REACTIONS (1)
  - SUICIDAL IDEATION [None]
